FAERS Safety Report 6526890-4 (Version None)
Quarter: 2010Q1

REPORT INFORMATION
  Report Type: 
  Country: None (occurrence: None)
  Receive Date: 20100105
  Receipt Date: 20100104
  Transmission Date: 20100710
  Serious: Yes (Hospitalization, Other)
  Sender: FDA-Public Use
  Company Number: PHHO2009US14590

PATIENT
  Age: 46 Year
  Sex: Male
  Weight: 103 kg

DRUGS (2)
  1. CLOZAPINE [Suspect]
     Indication: SCHIZOPHRENIA
     Dosage: UK MG, 2X/DAY
     Route: 048
     Dates: end: 20090825
  2. VARENICLINE [Suspect]

REACTIONS (6)
  - CONVULSION [None]
  - EPILEPSY [None]
  - INTENTIONAL OVERDOSE [None]
  - MENTAL STATUS CHANGES [None]
  - MYOCLONUS [None]
  - SUICIDE ATTEMPT [None]
